FAERS Safety Report 4985836-0 (Version None)
Quarter: 2006Q2

REPORT INFORMATION
  Report Type: 
  Country: None (occurrence: None)
  Receive Date: 20060421
  Receipt Date: 20060412
  Transmission Date: 20061013
  Serious: Yes (Other)
  Sender: FDA-Public Use
  Company Number: OSCN-NO-0604L-0087

PATIENT
  Age: 52 Year
  Sex: Female

DRUGS (2)
  1. OMNISCAN [Suspect]
     Indication: DRUG USE FOR UNKNOWN INDICATION
     Dosage: UNKNOWN, SINGLE DOSE; I.V.
     Route: 042
  2. ANGIOTENSIN II RECEPTOR BLOCKERS [Concomitant]

REACTIONS (6)
  - MYOCARDIAL INFARCTION [None]
  - NEPHROGENIC FIBROSING DERMOPATHY [None]
  - OCULAR HYPERAEMIA [None]
  - OCULAR ICTERUS [None]
  - PAIN [None]
  - SCLERAL DISORDER [None]
